FAERS Safety Report 20700548 (Version 2)
Quarter: 2022Q2

REPORT INFORMATION
  Report Type: Report from Study
  Country: FR (occurrence: None)
  Receive Date: 20220412
  Receipt Date: 20220425
  Transmission Date: 20220721
  Serious: Yes (Death, Hospitalization)
  Sender: FDA-Public Use
  Company Number: 2022A145215

PATIENT
  Age: 1007 Month
  Sex: Male
  Weight: 65 kg

DRUGS (19)
  1. EVUSHELD [Suspect]
     Active Substance: CILGAVIMAB\TIXAGEVIMAB
     Indication: COVID-19 prophylaxis
     Route: 030
     Dates: start: 20220221, end: 20220328
  2. CEFEPIME HYDROCHLORIDE [Concomitant]
     Active Substance: CEFEPIME HYDROCHLORIDE
  3. FUROSEMIDE [Concomitant]
     Active Substance: FUROSEMIDE
     Dosage: 500MG 1 TABLET MORNING AND NOON
  4. BISOPROLOL [Concomitant]
     Active Substance: BISOPROLOL
     Dosage: 1.25 MG X 2/DAY
  5. TAHOR [Concomitant]
     Active Substance: ATORVASTATIN CALCIUM
  6. VILDAGLIPTIN [Concomitant]
     Active Substance: VILDAGLIPTIN
     Dosage: 1 TABLET/DAY
  7. REPAGLINIDE [Concomitant]
     Active Substance: REPAGLINIDE
     Dosage: 2MG X3/DAY
  8. ESOMEPRAZOLE [Concomitant]
     Active Substance: ESOMEPRAZOLE
  9. ALFACALCIDOL [Concomitant]
     Active Substance: ALFACALCIDOL
     Dosage: 0.25 MCG X 3/ WEEK
  10. CALTRATE [Concomitant]
     Active Substance: CALCIUM CARBONATE
     Dosage: 600 MG X1/DAY
  11. CHOLECALCIFEROL [Concomitant]
     Active Substance: CHOLECALCIFEROL
     Dosage: 100 000 IU 1 VIAL TO DRINK EVERY 2 MONTHS
  12. RENAGEL [Concomitant]
     Active Substance: SEVELAMER HYDROCHLORIDE
     Dosage: 800MG : 2 CAPSULES AT NOON ON MEAL
  13. FOLIC ACID [Concomitant]
     Active Substance: FOLIC ACID
  14. BACTRIM [Concomitant]
     Active Substance: SULFAMETHOXAZOLE\TRIMETHOPRIM
     Dosage: 400 MG X 3 / WEEK
  15. AMOXICILLIN [Concomitant]
     Active Substance: AMOXICILLIN
     Dosage: 500 MG X 2/DAY
  16. VALACYCLOVIR HYDROCHLORIDE [Concomitant]
     Active Substance: VALACYCLOVIR HYDROCHLORIDE
  17. IMOVANE [Concomitant]
     Active Substance: ZOPICLONE
     Dosage: 7.5 MG : 1 TABLET AT BEDTIME
  18. DUPHALAC [Concomitant]
     Active Substance: LACTULOSE
     Dosage: 1 SACHET/DAY IF CONSTIPATION
  19. EPREX [Concomitant]
     Active Substance: ERYTHROPOIETIN
     Dosage: 8 000UI X2/ WEEK

REACTIONS (2)
  - COVID-19 [Fatal]
  - Product use issue [Unknown]

NARRATIVE: CASE EVENT DATE: 20220221
